FAERS Safety Report 25753255 (Version 1)
Quarter: 2025Q3

REPORT INFORMATION
  Report Type: Spontaneous
  Country: CN (occurrence: CN)
  Receive Date: 20250903
  Receipt Date: 20250903
  Transmission Date: 20251020
  Serious: Yes (Hospitalization)
  Sender: BEIGENE
  Company Number: CN-B.I. Pharmaceuticals,Inc./Ridgefield-2025-BI-020566

PATIENT
  Age: 59 Year
  Weight: 66 kg

DRUGS (2)
  1. TISLELIZUMAB [Suspect]
     Active Substance: TISLELIZUMAB
     Indication: Hepatic cancer
  2. NINTEDANIB [Suspect]
     Active Substance: NINTEDANIB
     Indication: Hepatic cancer

REACTIONS (3)
  - Immune-mediated enterocolitis [Unknown]
  - Diarrhoea [Unknown]
  - Intestinal ulcer [Unknown]
